FAERS Safety Report 6059660-4 (Version None)
Quarter: 2009Q1

REPORT INFORMATION
  Report Type: 
  Country: None (occurrence: None)
  Receive Date: 20090130
  Receipt Date: 20090119
  Transmission Date: 20090719
  Serious: Yes (Other)
  Sender: FDA-Public Use
  Company Number: US-ROCHE-609391

PATIENT
  Age: 83 Year
  Sex: Male

DRUGS (10)
  1. BONIVA [Suspect]
     Indication: OSTEOPOROSIS
     Route: 048
     Dates: start: 20080601
  2. NEXIUM [Concomitant]
  3. FOLGARD [Concomitant]
  4. LIPITOR [Concomitant]
  5. PROPRANOLOL [Concomitant]
  6. NIASPAN [Concomitant]
  7. FEXOFENADINE [Concomitant]
  8. ARICEPT [Concomitant]
  9. CALCIUM [Concomitant]
  10. VITAMINE D [Concomitant]

REACTIONS (1)
  - GAMMOPATHY [None]
